FAERS Safety Report 13582098 (Version 1)
Quarter: 2017Q2

REPORT INFORMATION
  Report Type: Report from Study
  Country: None (occurrence: US)
  Receive Date: 20170525
  Receipt Date: 20170525
  Transmission Date: 20170830
  Serious: Yes (Other)
  Sender: FDA-Public Use
  Company Number: US-ABBVIE-17P-163-1983999-00

PATIENT
  Sex: Female

DRUGS (1)
  1. LUPRON DEPOT [Suspect]
     Active Substance: LEUPROLIDE ACETATE
     Indication: ENDOMETRIOSIS
     Route: 050

REACTIONS (24)
  - Hot flush [Unknown]
  - Nervous system disorder [Unknown]
  - Suicidal ideation [Unknown]
  - Bone density decreased [Unknown]
  - Myalgia [Unknown]
  - Migraine [Unknown]
  - Nausea [Unknown]
  - Anaemia [Unknown]
  - Constipation [Unknown]
  - Mood swings [Unknown]
  - Diarrhoea [Unknown]
  - Cardiac disorder [Unknown]
  - Autonomic neuropathy [Unknown]
  - Night sweats [Unknown]
  - Anxiety [Unknown]
  - Asthenia [Unknown]
  - Vomiting [Unknown]
  - Sexual dysfunction [Unknown]
  - Anorgasmia [Unknown]
  - Vulvovaginal dryness [Unknown]
  - Alopecia [Unknown]
  - Dry eye [Unknown]
  - Arthralgia [Unknown]
  - Loss of libido [Unknown]
